FAERS Safety Report 9405141 (Version 2)
Quarter: 2013Q3

REPORT INFORMATION
  Report Type: Spontaneous
  Country: FR (occurrence: None)
  Receive Date: 20130708
  Receipt Date: 20130725
  Transmission Date: 20140515
  Serious: Yes (Life-Threatening)
  Sender: FDA-Public Use
  Company Number: 2013036692

PATIENT
  Age: 74 Year
  Sex: Female

DRUGS (4)
  1. PRIVIGEN [Suspect]
     Indication: HYPOGAMMAGLOBULINAEMIA
     Route: 042
     Dates: start: 20130614, end: 20130614
  2. RITUXIMAB (RITUXIMAB) [Concomitant]
  3. FLUDARABINE (FLUDARABINE) [Concomitant]
  4. ENDOXAN (CYCLOPHOSPHAMIDE) [Concomitant]

REACTIONS (10)
  - Transfusion-related acute lung injury [None]
  - Acute pulmonary oedema [None]
  - Cardio-respiratory arrest [None]
  - Respiratory distress [None]
  - Haemoptysis [None]
  - Cyanosis [None]
  - Cough [None]
  - Dyspnoea [None]
  - Feeling cold [None]
  - Hypoxia [None]
